FAERS Safety Report 16905036 (Version 1)
Quarter: 2019Q4

REPORT INFORMATION
  Report Type: Spontaneous
  Country: US (occurrence: US)
  Receive Date: 20191010
  Receipt Date: 20191010
  Transmission Date: 20200122
  Serious: Yes (Life-Threatening, Hospitalization)
  Sender: FDA-Public Use
  Company Number: None

PATIENT
  Age: 28 Year
  Sex: Female
  Weight: 54 kg

DRUGS (1)
  1. ACETAMINOPHEN. [Suspect]
     Active Substance: ACETAMINOPHEN
     Indication: HEADACHE

REACTIONS (4)
  - Anaphylactic reaction [None]
  - Urticaria [None]
  - Blood pressure decreased [None]
  - Pharyngeal swelling [None]

NARRATIVE: CASE EVENT DATE: 20180415
